FAERS Safety Report 5068200-8 (Version None)
Quarter: 2006Q3

REPORT INFORMATION
  Report Type: 
  Country: None (occurrence: None)
  Receive Date: 20060802
  Receipt Date: 20050418
  Transmission Date: 20061208
  Serious: No
  Sender: FDA-Public Use
  Company Number: US-BRISTOL-MYERS SQUIBB COMPANY-12954103

PATIENT
  Age: 68 Year
  Sex: Male
  Weight: 91 kg

DRUGS (5)
  1. COUMADIN [Suspect]
     Indication: THROMBOSIS
     Dosage: STOPPED THERAPY APR-2005 OR MAY-2005
     Dates: end: 20050101
  2. LOVENOX [Suspect]
     Indication: THROMBOSIS PROPHYLAXIS
  3. ASPIRIN [Suspect]
  4. ATROVENT [Concomitant]
  5. NICOTINIC ACID [Concomitant]

REACTIONS (3)
  - INCORRECT DOSE ADMINISTERED [None]
  - PRURITUS [None]
  - RASH GENERALISED [None]
